FAERS Safety Report 15157757 (Version 2)
Quarter: 2019Q2

REPORT INFORMATION
  Report Type: Spontaneous
  Country: US (occurrence: US)
  Receive Date: 20180718
  Receipt Date: 20190412
  Transmission Date: 20190711
  Serious: Yes (Death, Other)
  Sender: FDA-Public Use
  Company Number: US-PFIZER INC-2018287255

PATIENT
  Age: 32 Year
  Sex: Female
  Weight: 102 kg

DRUGS (2)
  1. LYRICA [Suspect]
     Active Substance: PREGABALIN
     Indication: NEURALGIA
  2. LYRICA [Suspect]
     Active Substance: PREGABALIN
     Indication: FACIAL NEURALGIA
     Dosage: 75 MG, 2X/DAY
     Dates: start: 201806

REACTIONS (2)
  - Death [Fatal]
  - Drug ineffective [Unknown]

NARRATIVE: CASE EVENT DATE: 201806
